FAERS Safety Report 12552709 (Version 2)
Quarter: 2017Q3

REPORT INFORMATION
  Report Type: Spontaneous
  Country: US (occurrence: US)
  Receive Date: 20160713
  Receipt Date: 20170712
  Transmission Date: 20171127
  Serious: Yes (Hospitalization)
  Sender: FDA-Public Use
  Company Number: US-JNJFOC-20160705906

PATIENT
  Age: 63 Year
  Sex: Male

DRUGS (7)
  1. NOVOLOG [Concomitant]
     Active Substance: INSULIN ASPART
     Indication: BLOOD GLUCOSE
     Dosage: SLIDING SCALE AS NEEDED
     Route: 065
     Dates: start: 2015
  2. INVOKANA [Suspect]
     Active Substance: CANAGLIFLOZIN
     Indication: DIABETES MELLITUS MANAGEMENT
     Dosage: 100 MG AND 300 MG
     Route: 048
     Dates: start: 201402, end: 201506
  3. ENALAPRIL [Concomitant]
     Active Substance: ENALAPRIL
     Indication: CARDIAC DISORDER
     Route: 065
     Dates: start: 2008
  4. LEVEMIR [Concomitant]
     Active Substance: INSULIN DETEMIR
     Indication: BLOOD GLUCOSE
     Dosage: 25 UNITS A.M. /20 UNITS P.M.
     Route: 065
     Dates: start: 2015
  5. RABEPRAZOLE [Concomitant]
     Active Substance: RABEPRAZOLE
     Indication: HYPERCHLORHYDRIA
     Dosage: SLIDING SCALE AS NEEDED
     Route: 065
     Dates: start: 2015
  6. CLOPIDOGREL [Concomitant]
     Active Substance: CLOPIDOGREL BISULFATE
     Indication: CORONARY ARTERIAL STENT INSERTION
     Dosage: SLIDING SCALE AS NEEDED
     Route: 065
     Dates: start: 2008
  7. ATORVASTATIN [Concomitant]
     Active Substance: ATORVASTATIN
     Indication: BLOOD CHOLESTEROL
     Dosage: SLIDING SCALE AS NEEDED
     Route: 065
     Dates: start: 2015

REACTIONS (5)
  - Myocardial infarction [Recovering/Resolving]
  - Diabetic ketoacidosis [Recovered/Resolved]
  - Amnesia [Unknown]
  - Acute kidney injury [Recovered/Resolved]
  - Fatigue [Unknown]

NARRATIVE: CASE EVENT DATE: 20150607
